FAERS Safety Report 11468090 (Version 1)
Quarter: 2015Q3

REPORT INFORMATION
  Report Type: Spontaneous
  Country: CL (occurrence: CL)
  Receive Date: 20150908
  Receipt Date: 20150908
  Transmission Date: 20151125
  Serious: Yes (Other)
  Sender: FDA-Public Use
  Company Number: CL-BAYER-2015-003484

PATIENT
  Age: 34 Year
  Sex: Female

DRUGS (1)
  1. QLAIRA [Suspect]
     Active Substance: DIENOGEST\ESTRADIOL VALERATE
     Indication: CONTRACEPTION
     Dosage: 1 DF, QD
     Route: 048
     Dates: start: 20140530, end: 20141109

REACTIONS (5)
  - Depression [Recovered/Resolved]
  - Pregnancy on oral contraceptive [Recovered/Resolved]
  - Drug ineffective [None]
  - Breech presentation [None]
  - Hormone level abnormal [Recovered/Resolved]

NARRATIVE: CASE EVENT DATE: 201410
